FAERS Safety Report 10638683 (Version 3)
Quarter: 2022Q4

REPORT INFORMATION
  Report Type: Report from Study
  Country: JP (occurrence: JP)
  Receive Date: 20141208
  Receipt Date: 20221109
  Transmission Date: 20230113
  Serious: Yes (Other)
  Sender: FDA-Public Use
  Company Number: JP-BAYER-2014-177858

PATIENT
  Age: 54 Year
  Sex: Male

DRUGS (11)
  1. NEXAVAR [Suspect]
     Active Substance: SORAFENIB
     Indication: Follicular thyroid cancer
     Dosage: 800MG/DAY
     Route: 048
     Dates: start: 20140804, end: 20140817
  2. NEXAVAR [Suspect]
     Active Substance: SORAFENIB
     Indication: Follicular thyroid cancer
     Dosage: 400MG/DAY
     Route: 048
     Dates: start: 20140901, end: 20140908
  3. NEXAVAR [Suspect]
     Active Substance: SORAFENIB
     Indication: Follicular thyroid cancer
     Dosage: 400MG/DAY
     Route: 048
     Dates: start: 20141020, end: 20150401
  4. LEVOTHYROXINE SODIUM [Concomitant]
     Active Substance: LEVOTHYROXINE SODIUM
     Indication: Follicular thyroid cancer
     Route: 048
  5. GLYCOSAMINOGLYCANS [Concomitant]
     Active Substance: GLYCOSAMINOGLYCANS
     Indication: Drug toxicity prophylaxis
     Dosage: UNK
     Route: 061
     Dates: start: 20140804
  6. KERATINAMIN KOWA [UREA] [Concomitant]
     Indication: Drug toxicity prophylaxis
     Dosage: UNK
     Route: 061
     Dates: start: 20140804
  7. RINDERON VG [Concomitant]
     Active Substance: BETAMETHASONE VALERATE\GENTAMICIN SULFATE
     Indication: Drug toxicity prophylaxis
     Dosage: UNK
     Route: 061
     Dates: start: 20140804
  8. LYRICA [Concomitant]
     Active Substance: PREGABALIN
     Dosage: UNK
     Route: 048
  9. LOXOPROFEN [Concomitant]
     Active Substance: LOXOPROFEN
     Route: 048
  10. CALCIUM CARBONATE\CHOLECALCIFEROL\MAGNESIUM CARBONATE [Concomitant]
     Active Substance: CALCIUM CARBONATE\CHOLECALCIFEROL\MAGNESIUM CARBONATE
     Indication: Hypocalcaemia
     Route: 048
  11. TEPRENONE [Concomitant]
     Active Substance: TEPRENONE
     Route: 048

REACTIONS (11)
  - Tumour necrosis [None]
  - Blood lactate dehydrogenase increased [Recovered/Resolved]
  - Rash [Recovered/Resolved]
  - Palmar-plantar erythrodysaesthesia syndrome [Recovered/Resolved]
  - Nasopharyngitis [Recovered/Resolved]
  - C-reactive protein increased [Recovered/Resolved]
  - Myalgia [Recovered/Resolved]
  - Stomatitis [Recovered/Resolved]
  - Blood creatine phosphokinase increased [Recovered/Resolved]
  - Alopecia [Not Recovered/Not Resolved]
  - Blood lactate dehydrogenase increased [Recovered/Resolved]

NARRATIVE: CASE EVENT DATE: 20140807
